FAERS Safety Report 6650383-7 (Version None)
Quarter: 2010Q1

REPORT INFORMATION
  Report Type: 
  Country: None (occurrence: None)
  Receive Date: 20100325
  Receipt Date: 20100319
  Transmission Date: 20100710
  Serious: Yes (Other)
  Sender: FDA-Public Use
  Company Number: CHPA2010JP05258

PATIENT
  Sex: Male

DRUGS (4)
  1. GLYSENNID [Suspect]
     Indication: CONSTIPATION
     Dosage: 24 MG, QD
     Route: 048
     Dates: start: 20091001, end: 20091228
  2. GLYSENNID [Suspect]
     Dosage: 24 MG, PRN
     Route: 048
     Dates: start: 20100101, end: 20100201
  3. CARDIAC THERAPY [Concomitant]
     Dosage: UNK
  4. ITOROL [Concomitant]
     Dosage: UNK, UNK
     Route: 048

REACTIONS (2)
  - EOSINOPHIL COUNT INCREASED [None]
  - RASH [None]
